FAERS Safety Report 7357874-4 (Version None)
Quarter: 2011Q1

REPORT INFORMATION
  Report Type: 
  Country: None (occurrence: None)
  Receive Date: 20110309
  Receipt Date: 20110221
  Transmission Date: 20110831
  Serious: Yes (Hospitalization, Other)
  Sender: FDA-Public Use
  Company Number: 2011MA001605

PATIENT
  Age: 89 Year
  Sex: Male

DRUGS (4)
  1. PARACETAMOL [Concomitant]
  2. THEOPHYLLINE [Concomitant]
  3. INDAPAMIDE [Suspect]
     Dosage: 2.5 MG;
  4. METHYLDOPA [Concomitant]

REACTIONS (13)
  - SOMNOLENCE [None]
  - MYDRIASIS [None]
  - VENTRICULAR EXTRASYSTOLES [None]
  - HYPOKALAEMIA [None]
  - VOMITING [None]
  - POLYURIA [None]
  - MULTIPLE DRUG OVERDOSE INTENTIONAL [None]
  - SUICIDE ATTEMPT [None]
  - COMA [None]
  - DEPRESSION [None]
  - HYPOTENSION [None]
  - HEART RATE DECREASED [None]
  - SINUS TACHYCARDIA [None]
